FAERS Safety Report 8987207 (Version 1)
Quarter: 2012Q4

REPORT INFORMATION
  Report Type: 
  Country: PL (occurrence: PL)
  Receive Date: 20121227
  Receipt Date: 20121227
  Transmission Date: 20130627
  Serious: Yes (Other)
  Sender: FDA-Public Use
  Company Number: PL-BRISTOL-MYERS SQUIBB COMPANY-17222100

PATIENT
  Sex: Female

DRUGS (5)
  1. ABILIFY [Suspect]
     Dosage: Increased to 30mg
  2. CLONAZEPAM [Concomitant]
     Dosage: per night
  3. QUETIAPINE [Concomitant]
     Dosage: per night
  4. PROPANOLOL HYDROCHLORIDE [Concomitant]
  5. BIPERIDEN [Concomitant]
     Dosage: 1 Df= 1 tablet

REACTIONS (4)
  - Suicidal ideation [Recovering/Resolving]
  - Psychotic disorder [Recovering/Resolving]
  - Anxiety [Recovered/Resolved]
  - Somnolence [Recovering/Resolving]
